FAERS Safety Report 8329257-1 (Version None)
Quarter: 2012Q2

REPORT INFORMATION
  Report Type: 
  Country: None (occurrence: None)
  Receive Date: 20120502
  Receipt Date: 20110920
  Transmission Date: 20120825
  Serious: No
  Sender: FDA-Public Use
  Company Number: US-ASTRAZENECA-2011SE51110

PATIENT
  Age: 57 Year
  Sex: Female

DRUGS (1)
  1. FASLODEX [Suspect]
     Route: 030
     Dates: start: 20110818

REACTIONS (5)
  - OEDEMA PERIPHERAL [None]
  - OEDEMA [None]
  - LUNG INFILTRATION [None]
  - CAPILLARY LEAK SYNDROME [None]
  - DYSPNOEA [None]
